FAERS Safety Report 23847510 (Version 3)
Quarter: 2025Q1

REPORT INFORMATION
  Report Type: Spontaneous
  Country: ZA (occurrence: ZA)
  Receive Date: 20240513
  Receipt Date: 20250212
  Transmission Date: 20250408
  Serious: Yes (Other)
  Sender: REGENERON
  Company Number: ZA-BAYER-2023A148588

PATIENT
  Sex: Male

DRUGS (2)
  1. EYLEA [Suspect]
     Active Substance: AFLIBERCEPT
     Indication: Neovascular age-related macular degeneration
     Dates: start: 20231012, end: 20231012
  2. EYLEA [Suspect]
     Active Substance: AFLIBERCEPT
     Indication: Retinal vein occlusion

REACTIONS (12)
  - Intra-ocular injection complication [Not Recovered/Not Resolved]
  - Visual impairment [Not Recovered/Not Resolved]
  - Major depression [Unknown]
  - Retinal degeneration [Unknown]
  - Tongue paralysis [Not Recovered/Not Resolved]
  - Suicidal ideation [Unknown]
  - Vitreous floaters [Not Recovered/Not Resolved]
  - Vitreous floaters [Not Recovered/Not Resolved]
  - Eye inflammation [Not Recovered/Not Resolved]
  - Intraocular pressure increased [Unknown]
  - Incorrect dose administered [Unknown]
  - Product administration error [Unknown]

NARRATIVE: CASE EVENT DATE: 20230101
